FAERS Safety Report 7653409-7 (Version None)
Quarter: 2011Q3

REPORT INFORMATION
  Report Type: 
  Country: None (occurrence: None)
  Receive Date: 20110803
  Receipt Date: 20110728
  Transmission Date: 20111222
  Serious: Yes (Hospitalization, Other)
  Sender: FDA-Public Use
  Company Number: CA-PFIZER INC-2011172343

PATIENT
  Age: 35 Year
  Sex: Male

DRUGS (2)
  1. ZOLOFT [Suspect]
     Dosage: 75 MG, UNK
     Dates: start: 20090101
  2. ZOLOFT [Suspect]
     Indication: DEPRESSION
     Dosage: 150 MG, UNK
     Dates: start: 20090101

REACTIONS (5)
  - DRUG LEVEL INCREASED [None]
  - MUSCLE SPASMS [None]
  - DRUG EFFECT PROLONGED [None]
  - OSTEOARTHRITIS [None]
  - MUSCLE RIGIDITY [None]
